FAERS Safety Report 18794073 (Version 1)
Quarter: 2021Q1

REPORT INFORMATION
  Report Type: Spontaneous
  Country: US (occurrence: US)
  Receive Date: 20210126
  Receipt Date: 20210126
  Transmission Date: 20210419
  Serious: No
  Sender: FDA-Public Use
  Company Number: None

PATIENT
  Age: 53 Year
  Sex: Female
  Weight: 66.2 kg

DRUGS (1)
  1. REMDESIVIR 100 MG IN 250 ML NS [Suspect]
     Active Substance: REMDESIVIR
     Indication: COVID-19 TREATMENT
     Dosage: ?          OTHER DOSE:100 MG IN 250 ML NS;?
     Route: 042

REACTIONS (3)
  - Infusion site pain [None]
  - Infusion site swelling [None]
  - Infusion site extravasation [None]

NARRATIVE: CASE EVENT DATE: 20210112
